FAERS Safety Report 16847288 (Version 3)
Quarter: 2019Q4

REPORT INFORMATION
  Report Type: Spontaneous
  Country: DE (occurrence: DE)
  Receive Date: 20190924
  Receipt Date: 20191031
  Transmission Date: 20200122
  Serious: Yes (Hospitalization, Other)
  Sender: FDA-Public Use
  Company Number: PHHY2019DE221433

PATIENT
  Age: 91 Year
  Sex: Male

DRUGS (8)
  1. INFECTOGENTA [Suspect]
     Active Substance: GENTAMICIN SULFATE
     Indication: OCULAR HYPERAEMIA
     Dosage: UNK UNK, BID
     Route: 065
     Dates: start: 201905, end: 2019
  2. ACETYLSALICYLIC ACID [Concomitant]
     Active Substance: ASPIRIN
     Indication: PRODUCT USED FOR UNKNOWN INDICATION
     Route: 065
  3. MELPERONE [Concomitant]
     Active Substance: MELPERONE
     Indication: PRODUCT USED FOR UNKNOWN INDICATION
     Route: 065
  4. TAMSULOSIN [Concomitant]
     Active Substance: TAMSULOSIN
     Indication: PRODUCT USED FOR UNKNOWN INDICATION
     Route: 065
  5. BEPANTHEN [Concomitant]
     Indication: PRODUCT USED FOR UNKNOWN INDICATION
     Route: 065
  6. INFECTOGENTA [Suspect]
     Active Substance: GENTAMICIN SULFATE
     Indication: EYE DISCHARGE
     Dosage: UNK
     Route: 065
     Dates: start: 201908
  7. AZARGA [Suspect]
     Active Substance: BRINZOLAMIDE\TIMOLOL MALEATE
     Indication: PRODUCT USED FOR UNKNOWN INDICATION
     Dosage: UNK
     Route: 065
     Dates: start: 2009
  8. RISPERIDONE. [Concomitant]
     Active Substance: RISPERIDONE
     Indication: PRODUCT USED FOR UNKNOWN INDICATION
     Route: 065

REACTIONS (6)
  - Cerebrovascular accident [Unknown]
  - Blindness [Unknown]
  - Ocular hyperaemia [Unknown]
  - Eye discharge [Unknown]
  - Cataract [Unknown]
  - Eating disorder [Unknown]

NARRATIVE: CASE EVENT DATE: 201908
